FAERS Safety Report 7816944-4 (Version None)
Quarter: 2011Q4

REPORT INFORMATION
  Report Type: 
  Country: None (occurrence: None)
  Receive Date: 20111017
  Receipt Date: 20111012
  Transmission Date: 20120403
  Serious: Yes (Hospitalization)
  Sender: FDA-Public Use
  Company Number: FR-CELGENEUS-056-21880-11101443

PATIENT
  Age: 80 Year
  Sex: Male

DRUGS (6)
  1. REVLIMID [Suspect]
     Indication: MULTIPLE MYELOMA
     Dosage: 10 MILLIGRAM
     Route: 048
     Dates: start: 20090101, end: 20090201
  2. REVLIMID [Suspect]
     Dosage: 25 MILLIGRAM
     Route: 048
     Dates: start: 20090201
  3. REVLIMID [Suspect]
     Dosage: 10 MILLIGRAM
     Route: 048
     Dates: start: 20090901, end: 20090901
  4. DEXAMETHASONE [Concomitant]
     Dosage: 80 MILLIGRAM
     Route: 065
     Dates: start: 20090201
  5. FUROSEMIDE [Concomitant]
     Dosage: 80 MILLIGRAM
     Route: 065
     Dates: start: 20090201
  6. DEXAMETHASONE [Concomitant]
     Indication: MULTIPLE MYELOMA
     Route: 065
     Dates: start: 20090101, end: 20090201

REACTIONS (1)
  - SUPERFICIAL SPREADING MELANOMA STAGE II [None]
